FAERS Safety Report 8151609-3 (Version None)
Quarter: 2012Q1

REPORT INFORMATION
  Report Type: 
  Country: None (occurrence: None)
  Receive Date: 20120220
  Receipt Date: 20120214
  Transmission Date: 20120608
  Serious: Yes (Congenital Anomaly)
  Sender: FDA-Public Use
  Company Number: US-GILEAD-2012-0050865

PATIENT
  Sex: Female

DRUGS (4)
  1. REYATAZ [Concomitant]
     Indication: HIV INFECTION
     Route: 064
  2. NORVIR [Concomitant]
     Indication: HIV INFECTION
     Route: 064
  3. TENOFOVIR DISOPROXIL FUMARATE [Suspect]
     Indication: HIV INFECTION
     Dosage: 300 MG, QD
     Route: 064
  4. COMBIVIR [Concomitant]
     Indication: HIV INFECTION
     Dosage: UNK UNK, QD
     Route: 064

REACTIONS (1)
  - ANKYLOGLOSSIA CONGENITAL [None]
